FAERS Safety Report 25892950 (Version 5)
Quarter: 2025Q4

REPORT INFORMATION
  Report Type: Spontaneous
  Country: US (occurrence: US)
  Receive Date: 20251007
  Receipt Date: 20251216
  Transmission Date: 20260118
  Serious: Yes (Hospitalization, Congenital Anomaly)
  Sender: ROCHE
  Company Number: US-ROCHE-10000401242

PATIENT
  Age: 40 Year
  Sex: Female

DRUGS (4)
  1. XOLAIR [Suspect]
     Active Substance: OMALIZUMAB
     Indication: Urticaria
     Dosage: STRENGTH:300MG/2ML
     Route: 058
     Dates: start: 202412
  2. XOLAIR [Suspect]
     Active Substance: OMALIZUMAB
     Indication: Idiopathic urticaria
  3. TAKHZYRO [Concomitant]
     Active Substance: LANADELUMAB-FLYO
  4. ANDEMBRY [Concomitant]
     Active Substance: GARADACIMAB-GXII

REACTIONS (9)
  - Ill-defined disorder [Unknown]
  - Gastrointestinal disorder [Unknown]
  - Ill-defined disorder [Unknown]
  - Laryngeal disorder [Unknown]
  - Abdominal pain [Unknown]
  - Pancreatitis [Unknown]
  - Off label use [Unknown]
  - Pharyngeal swelling [Unknown]
  - Abdominal distension [Unknown]

NARRATIVE: CASE EVENT DATE: 20251129
